FAERS Safety Report 22281907 (Version 1)
Quarter: 2023Q2

REPORT INFORMATION
  Report Type: Spontaneous
  Country: FR (occurrence: FR)
  Receive Date: 20230504
  Receipt Date: 20230504
  Transmission Date: 20230721
  Serious: Yes (Hospitalization, Other)
  Sender: FDA-Public Use
  Company Number: FR-ALKEM LABORATORIES LIMITED-FR-ALKEM-2023-04637

PATIENT
  Age: 26 Year
  Sex: Female

DRUGS (5)
  1. DALFAMPRIDINE [Interacting]
     Active Substance: DALFAMPRIDINE
     Indication: Relapsing-remitting multiple sclerosis
     Dosage: 10 MILLIGRAM, BID
     Route: 065
  2. DALFAMPRIDINE [Interacting]
     Active Substance: DALFAMPRIDINE
     Indication: Multiple sclerosis
  3. BACLOFEN [Interacting]
     Active Substance: BACLOFEN
     Indication: Relapsing-remitting multiple sclerosis
     Dosage: 10 MILLIGRAM, TID,
     Route: 065
  4. BACLOFEN [Interacting]
     Active Substance: BACLOFEN
     Indication: Multiple sclerosis
     Dosage: 5 MILLIGRAM, TID, LOWER DOSE
     Route: 065
  5. TAMSULOSIN [Concomitant]
     Active Substance: TAMSULOSIN
     Indication: Product used for unknown indication
     Dosage: 0.4 MG/D, QD
     Route: 065

REACTIONS (2)
  - Status epilepticus [Unknown]
  - Drug interaction [Unknown]
